FAERS Safety Report 7288893-4 (Version None)
Quarter: 2011Q1

REPORT INFORMATION
  Report Type: 
  Country: None (occurrence: None)
  Receive Date: 20110211
  Receipt Date: 20110207
  Transmission Date: 20110831
  Serious: Yes (Hospitalization)
  Sender: FDA-Public Use
  Company Number: IT-PFIZER INC-2011022647

PATIENT
  Age: 49 Year
  Sex: Male

DRUGS (1)
  1. XANAX [Suspect]
     Indication: DEPRESSION
     Dosage: 20 MG, 1X/DAY
     Route: 048
     Dates: start: 20101102, end: 20101102

REACTIONS (5)
  - DEPRESSED LEVEL OF CONSCIOUSNESS [None]
  - HYPOTENSION [None]
  - SOPOR [None]
  - ATRIAL FIBRILLATION [None]
  - VOMITING [None]
